FAERS Safety Report 23284693 (Version 2)
Quarter: 2024Q1

REPORT INFORMATION
  Report Type: Spontaneous
  Country: US (occurrence: US)
  Receive Date: 20231211
  Receipt Date: 20240307
  Transmission Date: 20240410
  Serious: Yes (Other)
  Sender: FDA-Public Use
  Company Number: US-PFIZER INC-202300434906

PATIENT
  Age: 56 Year
  Sex: Male
  Weight: 84.626 kg

DRUGS (1)
  1. CIBINQO [Suspect]
     Active Substance: ABROCITINIB
     Indication: Dermatitis atopic
     Dosage: 100 MG, 1X/DAY
     Dates: start: 202307

REACTIONS (2)
  - Back injury [Unknown]
  - Acne [Not Recovered/Not Resolved]
